FAERS Safety Report 15908690 (Version 1)
Quarter: 2019Q1

REPORT INFORMATION
  Report Type: Spontaneous
  Country: US (occurrence: US)
  Receive Date: 20190204
  Receipt Date: 20190204
  Transmission Date: 20190417
  Serious: No
  Sender: FDA-Public Use
  Company Number: US-ABBVIE-18K-163-2264975-00

PATIENT
  Age: 57 Year
  Sex: Female
  Weight: 72.64 kg

DRUGS (3)
  1. HUMIRA [Suspect]
     Active Substance: ADALIMUMAB
     Indication: RHEUMATOID ARTHRITIS
     Route: 058
     Dates: start: 201711, end: 201711
  2. ENBREL [Suspect]
     Active Substance: ETANERCEPT
     Indication: RHEUMATOID ARTHRITIS
     Route: 065
     Dates: start: 201711, end: 201711
  3. XELJANZ XR [Suspect]
     Active Substance: TOFACITINIB CITRATE
     Indication: RHEUMATOID ARTHRITIS
     Route: 048
     Dates: start: 201711

REACTIONS (8)
  - Rash [Not Recovered/Not Resolved]
  - Weight increased [Unknown]
  - Skin exfoliation [Not Recovered/Not Resolved]
  - Asthenia [Recovering/Resolving]
  - Swelling face [Recovered/Resolved]
  - Dyspnoea [Recovering/Resolving]
  - Drug hypersensitivity [Unknown]
  - Bedridden [Recovering/Resolving]

NARRATIVE: CASE EVENT DATE: 201711
